FAERS Safety Report 7803320-3 (Version None)
Quarter: 2011Q4

REPORT INFORMATION
  Report Type: 
  Country: None (occurrence: None)
  Receive Date: 20111007
  Receipt Date: 20111005
  Transmission Date: 20120403
  Serious: Yes (Life-Threatening, Other)
  Sender: FDA-Public Use
  Company Number: US-B.I. PHARMACEUTICALS,INC./RIDGEFIELD-2011-BP-17763BP

PATIENT
  Age: 83 Year
  Sex: Female
  Weight: 69.4 kg

DRUGS (4)
  1. FUROSEMIDE [Concomitant]
     Dosage: 40 MG
     Dates: start: 20110510
  2. CARDIZEM [Concomitant]
     Dosage: 240 MG
     Dates: start: 20110510
  3. DIGOXIN [Concomitant]
     Dosage: 0.125 MG
     Dates: start: 20110510
  4. PRADAXA [Suspect]
     Dosage: 300 MG
     Dates: start: 20110517

REACTIONS (5)
  - DISSEMINATED INTRAVASCULAR COAGULATION [None]
  - SEPSIS [None]
  - ARTERIAL HAEMORRHAGE [None]
  - INTERNATIONAL NORMALISED RATIO INCREASED [None]
  - RENAL FAILURE ACUTE [None]
